FAERS Safety Report 6011851-4 (Version None)
Quarter: 2008Q4

REPORT INFORMATION
  Report Type: 
  Country: None (occurrence: None)
  Receive Date: 20081218
  Receipt Date: 20081216
  Transmission Date: 20090506
  Serious: Yes (Death)
  Sender: FDA-Public Use
  Company Number: KR-SANOFI-SYNTHELABO-F01200801899

PATIENT
  Sex: Male

DRUGS (7)
  1. CALCIUM POLYCARBOPHIL [Concomitant]
     Dosage: UNK
     Dates: start: 20061204
  2. GABAPENTIN [Concomitant]
     Dosage: UNK
     Dates: start: 20060613
  3. AMITRIPTYLINE HCL [Concomitant]
     Dosage: UNK
     Dates: start: 20060710
  4. MAGNESIUM HYDROXIDE TAB [Concomitant]
     Dosage: UNK
     Dates: start: 20060821
  5. BEVACIZUMAB [Suspect]
     Route: 041
     Dates: start: 20061023, end: 20061023
  6. FLUOROURACIL [Suspect]
     Dosage: 400MG/M2 IV BOLUS AND 600MG/M2 CONTINUOUS INFUSION Q2W
     Route: 042
     Dates: start: 20060619, end: 20060619
  7. OXALIPLATIN [Suspect]
     Indication: COLON CANCER
     Route: 041
     Dates: start: 20060619, end: 20060619

REACTIONS (1)
  - DEATH [None]
